FAERS Safety Report 11544189 (Version 1)
Quarter: 2015Q3

REPORT INFORMATION
  Report Type: Spontaneous
  Country: US (occurrence: US)
  Receive Date: 20150924
  Receipt Date: 20150924
  Transmission Date: 20151125
  Serious: Yes (Other)
  Sender: FDA-Public Use
  Company Number: US-SUN PHARMACEUTICAL INDUSTRIES LTD-2014SUN00815

PATIENT

DRUGS (8)
  1. DILANTIN INFATABS [Concomitant]
     Active Substance: PHENYTOIN
     Dosage: 50 MG, UNK
     Dates: end: 20140408
  2. DILANTIN [Concomitant]
     Active Substance: PHENYTOIN
     Dosage: 100 MG, TID
  3. LAMICTAL [Concomitant]
     Active Substance: LAMOTRIGINE
     Dosage: 100 MG, ONCE A DAY
  4. DIVALPROEX SODIUM DR [Suspect]
     Active Substance: DIVALPROEX SODIUM
     Dosage: 500MG IN MORNING AND 250MG IN EVENING
     Route: 065
  5. DIVALPROEX SODIUM DR [Suspect]
     Active Substance: DIVALPROEX SODIUM
     Dosage: 500MG IN MORNING AND HALF TABLET IN EVENING
     Route: 065
  6. CLONAZEPAM. [Concomitant]
     Active Substance: CLONAZEPAM
     Dosage: 0.5 MG, ONE AND A HALF TABLET AT NIGHT
  7. DIVALPROEX SODIUM DR [Suspect]
     Active Substance: DIVALPROEX SODIUM
     Indication: EPILEPSY
     Dosage: 500 MG, TID
     Route: 065
     Dates: start: 20140102
  8. DIVALPROEX SODIUM DR [Suspect]
     Active Substance: DIVALPROEX SODIUM
     Dosage: UNK
     Route: 065

REACTIONS (4)
  - Pruritus [Recovered/Resolved]
  - Seizure [Unknown]
  - Weight decreased [Not Recovered/Not Resolved]
  - Drug titration error [Unknown]

NARRATIVE: CASE EVENT DATE: 201401
